FAERS Safety Report 8113949-3 (Version None)
Quarter: 2012Q1

REPORT INFORMATION
  Report Type: 
  Country: None (occurrence: None)
  Receive Date: 20120203
  Receipt Date: 20120130
  Transmission Date: 20120608
  Serious: No
  Sender: FDA-Public Use
  Company Number: US-PFIZER INC-2012025598

PATIENT
  Sex: Female
  Weight: 113 kg

DRUGS (5)
  1. GABAPENTIN [Suspect]
     Indication: SCIATIC NERVE INJURY
     Dosage: UNK
     Dates: start: 20110701, end: 20110101
  2. VYTORIN [Concomitant]
     Indication: BLOOD CHOLESTEROL INCREASED
     Dosage: 10/40 MG DAILY
  3. MAXZIDE [Concomitant]
     Indication: FLUID RETENTION
     Dosage: 75/50 MG DAILY
  4. LYRICA [Suspect]
     Indication: SCIATIC NERVE INJURY
     Dosage: UNK
  5. METFORMIN [Concomitant]
     Indication: DIABETES MELLITUS
     Dosage: 500 MG, 2X/DAY

REACTIONS (4)
  - WITHDRAWAL SYNDROME [None]
  - HEADACHE [None]
  - DRUG INEFFECTIVE [None]
  - MALAISE [None]
